FAERS Safety Report 19485889 (Version 1)
Quarter: 2021Q3

REPORT INFORMATION
  Report Type: Spontaneous
  Country: CN (occurrence: CN)
  Receive Date: 20210702
  Receipt Date: 20210702
  Transmission Date: 20211014
  Serious: Yes (Other)
  Sender: FDA-Public Use
  Company Number: CN-PFIZER INC-2021737326

PATIENT
  Age: 47 Year
  Sex: Male

DRUGS (2)
  1. LINEZOLID. [Suspect]
     Active Substance: LINEZOLID
     Dosage: 0.6 G, 2X/DAY (Q12H)
     Dates: start: 20190111, end: 20190122
  2. BIAPENEM [Concomitant]
     Active Substance: BIAPENEM
     Indication: ANTI-INFECTIVE THERAPY
     Dosage: UNK
     Dates: start: 20181229

REACTIONS (1)
  - Thrombocytopenia [Recovered/Resolved]
